FAERS Safety Report 8481081-5 (Version None)
Quarter: 2012Q3

REPORT INFORMATION
  Report Type: 
  Country: None (occurrence: None)
  Receive Date: 20120702
  Receipt Date: 20120627
  Transmission Date: 20120928
  Serious: Yes (Hospitalization)
  Sender: FDA-Public Use
  Company Number: PHHY2012AR055743

PATIENT
  Sex: Male

DRUGS (1)
  1. DIOVAN HCT [Suspect]
     Indication: HYPERTENSION
     Dosage: 1 DF, QD (32 MG VALS AND 25 MG HYDRO)
     Dates: start: 20100101, end: 20120614

REACTIONS (3)
  - TIBIA FRACTURE [None]
  - BLOOD GLUCOSE INCREASED [None]
  - FALL [None]
